FAERS Safety Report 24684367 (Version 2)
Quarter: 2025Q2

REPORT INFORMATION
  Report Type: Report from Study
  Country: GB (occurrence: GB)
  Receive Date: 20241202
  Receipt Date: 20250402
  Transmission Date: 20250716
  Serious: Yes (Other)
  Sender: NOVARTIS
  Company Number: GB-002147023-NVSC2024GB113574

PATIENT
  Sex: Female

DRUGS (1)
  1. KESIMPTA [Suspect]
     Active Substance: OFATUMUMAB
     Indication: Product used for unknown indication
     Dosage: 20 MG, QMO
     Route: 058
     Dates: start: 20240131

REACTIONS (6)
  - Multiple sclerosis [Unknown]
  - Balance disorder [Unknown]
  - Back pain [Unknown]
  - Paraesthesia [Unknown]
  - Fatigue [Unknown]
  - Nasal congestion [Unknown]
